FAERS Safety Report 23117642 (Version 1)
Quarter: 2023Q4

REPORT INFORMATION
  Report Type: Spontaneous
  Country: US (occurrence: US)
  Receive Date: 20231027
  Receipt Date: 20231027
  Transmission Date: 20240110
  Serious: No
  Sender: FDA-Public Use
  Company Number: US-MERIDIAN MEDICAL TECHNOLOGIES, LLC-2022MMT00044

PATIENT
  Age: 41 Year
  Sex: Female
  Weight: 58.97 kg

DRUGS (3)
  1. SEIZALAM [Suspect]
     Active Substance: MIDAZOLAM HYDROCHLORIDE
     Indication: Aggression
     Dosage: UNK, ONCE, INJECTION TO STOMACH
     Dates: start: 20221005
  2. MORPHINE [Suspect]
     Active Substance: MORPHINE
     Dosage: 15 MG
     Dates: start: 20221005
  3. PROZAC [Concomitant]
     Active Substance: FLUOXETINE HYDROCHLORIDE
     Dosage: UNK, 1X/DAY
     Route: 048

REACTIONS (12)
  - Aggression [Recovered/Resolved]
  - Dyspnoea [Recovered/Resolved]
  - Confusional state [Recovered/Resolved]
  - Electric shock [Recovering/Resolving]
  - Wound [Recovering/Resolving]
  - Skin abrasion [Recovering/Resolving]
  - Somnolence [Recovered/Resolved]
  - Sedation [Recovered/Resolved]
  - Amnesia [Not Recovered/Not Resolved]
  - Alcohol interaction [Unknown]
  - Drug interaction [Unknown]
  - Unevaluable event [Recovered/Resolved]

NARRATIVE: CASE EVENT DATE: 20221001
